FAERS Safety Report 18374324 (Version 1)
Quarter: 2020Q4

REPORT INFORMATION
  Report Type: Spontaneous
  Country: US (occurrence: US)
  Receive Date: 20201012
  Receipt Date: 20201012
  Transmission Date: 20210114
  Serious: Yes (Other)
  Sender: FDA-Public Use
  Company Number: US-TEVA-2020-US-1835035

PATIENT
  Age: 71 Year
  Sex: Female
  Weight: 88.4 kg

DRUGS (7)
  1. HYDROCHLOROTHIAZIDE. [Suspect]
     Active Substance: HYDROCHLOROTHIAZIDE
     Indication: HYPERTENSION
     Route: 065
     Dates: start: 2020
  2. RASUVO [Suspect]
     Active Substance: METHOTREXATE SODIUM
     Route: 065
     Dates: start: 202007, end: 2020
  3. CARVEDILOL. [Suspect]
     Active Substance: CARVEDILOL
     Indication: HYPERTENSION
     Route: 065
     Dates: start: 2020
  4. RASUVO [Suspect]
     Active Substance: METHOTREXATE SODIUM
     Route: 065
     Dates: start: 2020
  5. SIMPONI [Concomitant]
     Active Substance: GOLIMUMAB
     Dates: start: 2018
  6. RASUVO [Suspect]
     Active Substance: METHOTREXATE SODIUM
     Route: 065
     Dates: start: 202007, end: 202007
  7. RASUVO [Suspect]
     Active Substance: METHOTREXATE SODIUM
     Indication: RHEUMATOID ARTHRITIS
     Route: 065
     Dates: start: 202003, end: 202007

REACTIONS (3)
  - Glomerular filtration rate decreased [Not Recovered/Not Resolved]
  - Protein urine present [Unknown]
  - Creatinine urine increased [Not Recovered/Not Resolved]

NARRATIVE: CASE EVENT DATE: 2020
